FAERS Safety Report 6835914-6 (Version None)
Quarter: 2010Q3

REPORT INFORMATION
  Report Type: 
  Country: None (occurrence: None)
  Receive Date: 20100713
  Receipt Date: 20100701
  Transmission Date: 20110219
  Serious: Yes (Other)
  Sender: FDA-Public Use
  Company Number: BE-WYE-H16021610

PATIENT
  Age: 77 Year
  Sex: Male

DRUGS (8)
  1. CORDARONE [Suspect]
     Indication: PRODUCT USED FOR UNKNOWN INDICATION
     Route: 048
     Dates: start: 20100601, end: 20100618
  2. CORDARONE [Suspect]
     Route: 048
     Dates: start: 20100621
  3. BISOPROLOL [Concomitant]
     Dosage: UNKNOWN
     Dates: end: 20100613
  4. TEGRETOL [Concomitant]
     Dosage: UNKNOWN
  5. SIMVASTATIN [Concomitant]
     Dosage: UNKNOWN
  6. AMLOR [Concomitant]
     Dosage: UNKNOWN
  7. SINTROM [Concomitant]
     Dosage: UNKNOWN
  8. ALLOPURINOL [Concomitant]
     Dosage: UNKNOWN

REACTIONS (2)
  - BRADYCARDIA [None]
  - SLEEP APNOEA SYNDROME [None]
